FAERS Safety Report 6731042-9 (Version None)
Quarter: 2010Q2

REPORT INFORMATION
  Report Type: 
  Country: None (occurrence: None)
  Receive Date: 20100514
  Receipt Date: 20100504
  Transmission Date: 20101027
  Serious: No
  Sender: FDA-Public Use
  Company Number: 008963

PATIENT
  Age: 82 Year
  Sex: Male

DRUGS (8)
  1. PLETAL [Suspect]
     Indication: ARTERIOSCLEROSIS OBLITERANS
     Dosage: 100 MG, QD, ORAL; 100 MG, QD; ORAL
     Route: 048
     Dates: start: 20090404, end: 20091024
  2. PLETAL [Suspect]
     Indication: ARTERIOSCLEROSIS OBLITERANS
     Dosage: 100 MG, QD, ORAL; 100 MG, QD; ORAL
     Route: 048
     Dates: start: 20100210
  3. WARFARIN SODIUM [Suspect]
     Dosage: 1.5 MG,QD, ORAL
     Route: 048
     Dates: end: 20091027
  4. LASIX [Concomitant]
  5. MICARDIS [Concomitant]
  6. VERAPAMIL HYDROCHLORIDE [Concomitant]
  7. ALLOPURINOL [Concomitant]
  8. DIGOXIN [Concomitant]

REACTIONS (1)
  - TUMOUR HAEMORRHAGE [None]
